FAERS Safety Report 14266053 (Version 1)
Quarter: 2017Q4

REPORT INFORMATION
  Report Type: Spontaneous
  Country: LT (occurrence: LT)
  Receive Date: 20171209
  Receipt Date: 20171209
  Transmission Date: 20180321
  Serious: Yes (Other)
  Sender: FDA-Public Use
  Company Number: BAXTER-2017BAX041034

PATIENT
  Age: 72 Year
  Sex: Male
  Weight: 101 kg

DRUGS (6)
  1. DEXAMETHASONE. [Suspect]
     Active Substance: DEXAMETHASONE
     Indication: PLASMA CELL MYELOMA
  2. DEXAMETHASONE. [Suspect]
     Active Substance: DEXAMETHASONE
     Indication: PLASMA CELL MYELOMA
     Dosage: DOSAGE FORM: UNSPECIFIED CYCLICAL
     Route: 065
     Dates: start: 20130823, end: 20131126
  3. ENDOXAN 1 G MILTELIAI INJEKCINIAM TIRPALUI [Suspect]
     Active Substance: CYCLOPHOSPHAMIDE
     Indication: PLASMA CELL MYELOMA
  4. ENDOXAN 1 G MILTELIAI INJEKCINIAM TIRPALUI [Suspect]
     Active Substance: CYCLOPHOSPHAMIDE
     Indication: PLASMA CELL MYELOMA
     Dosage: DOSAGE FORM: UNSPECIFIED CYCLICAL
     Route: 065
     Dates: start: 20130823, end: 20131126
  5. BORTEZOMIB [Suspect]
     Active Substance: BORTEZOMIB
     Indication: PLASMA CELL MYELOMA
     Dosage: DOSAGE FORM: LYOPHILIZED POWDER, ON DAY 1, 4, 8, 11 OF EACH CYCLES1.3 MG/M2 CYCLICAL
     Route: 065
     Dates: start: 20130823, end: 20131126
  6. THALIDOMIDE [Suspect]
     Active Substance: THALIDOMIDE
     Indication: PLASMA CELL MYELOMA

REACTIONS (1)
  - Plasma cell myeloma [None]

NARRATIVE: CASE EVENT DATE: 201308
